FAERS Safety Report 10272009 (Version 2)
Quarter: 2014Q3

REPORT INFORMATION
  Report Type: Report from Study
  Country: MX (occurrence: MX)
  Receive Date: 20140702
  Receipt Date: 20140803
  Transmission Date: 20150326
  Serious: Yes (Death)
  Sender: FDA-Public Use
  Company Number: PHHY2014MX080868

PATIENT
  Age: 84 Year
  Sex: Male

DRUGS (2)
  1. DRUG THERAPY NOS [Concomitant]
     Active Substance: UNSPECIFIED INGREDIENT
     Indication: DIABETES MELLITUS
     Dosage: UNK UKN, UNK
  2. EXELON PATCH [Suspect]
     Active Substance: RIVASTIGMINE
     Indication: DEMENTIA
     Dosage: 4.6 MG (5 CM2), DAILY
     Route: 062
     Dates: start: 201403

REACTIONS (2)
  - Nervous system disorder [Fatal]
  - Pneumonia [Fatal]
